FAERS Safety Report 19597931 (Version 1)
Quarter: 2021Q3

REPORT INFORMATION
  Report Type: Spontaneous
  Country: US (occurrence: US)
  Receive Date: 20210722
  Receipt Date: 20210722
  Transmission Date: 20211014
  Serious: Yes (Hospitalization)
  Sender: FDA-Public Use
  Company Number: None

PATIENT
  Age: 19 Year
  Sex: Male
  Weight: 111 kg

DRUGS (2)
  1. HYDROXYUREA. [Concomitant]
     Active Substance: HYDROXYUREA
     Dates: start: 20110101, end: 20210722
  2. CRIZANLIZUMAB [Suspect]
     Active Substance: CRIZANLIZUMAB
     Indication: SICKLE CELL DISEASE
     Dosage: ?          OTHER FREQUENCY:Q2WK X 2 DOSES;?
     Route: 040
     Dates: start: 20210712, end: 20210712

REACTIONS (1)
  - Back pain [None]

NARRATIVE: CASE EVENT DATE: 20210712
